FAERS Safety Report 19745350 (Version 1)
Quarter: 2021Q3

REPORT INFORMATION
  Report Type: Spontaneous
  Country: US (occurrence: US)
  Receive Date: 20210825
  Receipt Date: 20210825
  Transmission Date: 20211014
  Serious: Yes (Other)
  Sender: FDA-Public Use
  Company Number: US-PFIZER INC-202101065574

PATIENT
  Age: 64 Year
  Sex: Female

DRUGS (1)
  1. LORLATINIB [Suspect]
     Active Substance: LORLATINIB
     Dosage: 75 MG

REACTIONS (4)
  - Abdominal distension [Unknown]
  - Ileus [Unknown]
  - Eating disorder [Unknown]
  - Gastric disorder [Unknown]
